FAERS Safety Report 5455328-3 (Version None)
Quarter: 2007Q3

REPORT INFORMATION
  Report Type: 
  Country: None (occurrence: None)
  Receive Date: 20070918
  Receipt Date: 20060718
  Transmission Date: 20080115
  Serious: No
  Sender: FDA-Public Use
  Company Number: US-BRISTOL-MYERS SQUIBB COMPANY-13444971

PATIENT
  Age: 51 Year
  Sex: Female

DRUGS (1)
  1. MEGACE [Suspect]
     Indication: ANOREXIA
     Route: 048
     Dates: start: 20051210

REACTIONS (2)
  - DIZZINESS [None]
  - MEDICATION ERROR [None]
